FAERS Safety Report 6302895-3 (Version None)
Quarter: 2009Q3

REPORT INFORMATION
  Report Type: 
  Country: None (occurrence: None)
  Receive Date: 20090810
  Receipt Date: 20090731
  Transmission Date: 20100115
  Serious: Yes (Death)
  Sender: FDA-Public Use
  Company Number: DE-ABBOTT-09P-062-0588570-00

PATIENT
  Age: 68 Year
  Sex: Female

DRUGS (8)
  1. VALPROIC ACID [Suspect]
     Indication: DRUG USE FOR UNKNOWN INDICATION
     Route: 048
  2. CARBIDOPA [Suspect]
     Indication: DRUG USE FOR UNKNOWN INDICATION
  3. CLOZAPINE [Suspect]
     Indication: DRUG USE FOR UNKNOWN INDICATION
     Dosage: FORM: 25 MILLIGRAMS
  4. DOMPERIDONE [Suspect]
     Indication: DRUG USE FOR UNKNOWN INDICATION
  5. OMEPRAZOLE [Suspect]
     Indication: DRUG USE FOR UNKNOWN INDICATION
  6. PIPAMPERONE [Suspect]
     Indication: DRUG USE FOR UNKNOWN INDICATION
  7. RIVASTIGMINE TARTRATE [Suspect]
     Indication: DRUG USE FOR UNKNOWN INDICATION
  8. LEVODOPA/CARBIDOPA/ENTACAPONE [Suspect]
     Indication: DRUG USE FOR UNKNOWN INDICATION
     Dosage: 600 MG/DAY
     Route: 048

REACTIONS (1)
  - SUBILEUS [None]
